FAERS Safety Report 6457859-6 (Version None)
Quarter: 2009Q4

REPORT INFORMATION
  Report Type: 
  Country: None (occurrence: None)
  Receive Date: 20091125
  Receipt Date: 20091116
  Transmission Date: 20100525
  Serious: Yes (Hospitalization)
  Sender: FDA-Public Use
  Company Number: GB-GENENTECH-294731

PATIENT
  Sex: Female
  Weight: 62.5 kg

DRUGS (11)
  1. RITUXIMAB [Suspect]
     Indication: DIFFUSE LARGE B-CELL LYMPHOMA
     Dosage: FREQUENCY: 1
     Route: 042
     Dates: start: 20091008, end: 20091008
  2. GEMCITABINE [Suspect]
     Indication: DIFFUSE LARGE B-CELL LYMPHOMA
     Dosage: FREQUENCY: 1
     Route: 042
     Dates: start: 20091008, end: 20091008
  3. CYCLOPHOSPHAMIDE [Suspect]
     Indication: DIFFUSE LARGE B-CELL LYMPHOMA
     Dosage: FREQUENCY: 1
     Route: 042
     Dates: start: 20091008, end: 20091008
  4. VINCRISTINE [Suspect]
     Indication: DIFFUSE LARGE B-CELL LYMPHOMA
     Dosage: FREQUENCY:1
     Route: 042
     Dates: start: 20091008, end: 20091008
  5. PREDNISOLONE [Suspect]
     Indication: DIFFUSE LARGE B-CELL LYMPHOMA
     Dosage: FREQUENCY: 5/7
     Route: 048
     Dates: start: 20091008, end: 20091012
  6. NEULASTA [Suspect]
     Indication: DIFFUSE LARGE B-CELL LYMPHOMA
     Dosage: FREQEUNCY: 1
     Route: 058
     Dates: start: 20091008, end: 20091008
  7. ATENOLOL [Concomitant]
     Indication: HYPERTENSION
     Dosage: 25 MG, QAM
     Route: 048
     Dates: start: 20050101
  8. RANITIDINE [Concomitant]
     Indication: ANTACID THERAPY
     Dosage: 150 MG, BID
     Route: 048
     Dates: start: 19950101
  9. PERINDOPRIL [Concomitant]
     Indication: HYPERTENSION
     Dosage: 5 MG, QAM
     Route: 048
     Dates: start: 20091020
  10. METOCLOPRAMIDE [Concomitant]
     Indication: NAUSEA
     Dosage: 10 MG, UNK
     Dates: start: 20091016
  11. SEPTRIN [Concomitant]
     Indication: PROPHYLAXIS
     Dosage: 480 MG, BID
     Dates: start: 20090924

REACTIONS (1)
  - PULMONARY EMBOLISM [None]
